FAERS Safety Report 19603050 (Version 1)
Quarter: 2021Q3

REPORT INFORMATION
  Report Type: Other
  Country: US (occurrence: US)
  Receive Date: 20210723
  Receipt Date: 20210723
  Transmission Date: 20211014
  Serious: Yes (Life-Threatening, Hospitalization, Congenital Anomaly, Other)
  Sender: FDA-Public Use
  Company Number: US-B.BRAUN MEDICAL INC.-2114208

PATIENT
  Age: 1 Day
  Sex: Male

DRUGS (1)
  1. ACETAMINOPHEN. [Suspect]
     Active Substance: ACETAMINOPHEN
     Indication: DISCOMFORT

REACTIONS (3)
  - Neonatal respiratory failure [Recovered/Resolved]
  - Pulmonary hypertension [Recovered/Resolved]
  - Ductus arteriosus premature closure [Recovered/Resolved]
